FAERS Safety Report 17990900 (Version 2)
Quarter: 2020Q3

REPORT INFORMATION
  Report Type: Spontaneous
  Country: DE (occurrence: DE)
  Receive Date: 20200707
  Receipt Date: 20200904
  Transmission Date: 20201103
  Serious: Yes (Other)
  Sender: FDA-Public Use
  Company Number: DE-ALEXION-A202009812

PATIENT
  Sex: Female

DRUGS (1)
  1. STRENSIQ [Suspect]
     Active Substance: ASFOTASE ALFA
     Indication: HYPOPHOSPHATASIA
     Dosage: 2X80 MG, QW
     Route: 065
     Dates: start: 201901

REACTIONS (3)
  - Renal failure [Unknown]
  - Arteriosclerosis [Unknown]
  - Blood parathyroid hormone abnormal [Unknown]
